FAERS Safety Report 8826064 (Version 2)
Quarter: 2012Q4

REPORT INFORMATION
  Report Type: 
  Country: US (occurrence: US)
  Receive Date: 20121005
  Receipt Date: 20121009
  Transmission Date: 20130627
  Serious: Yes (Death, Other)
  Sender: FDA-Public Use
  Company Number: US-ROCHE-1136846

PATIENT
  Sex: Female

DRUGS (6)
  1. RITUXAN [Suspect]
     Indication: HODGKIN^S DISEASE
  2. CYTOXAN [Concomitant]
  3. GEMCITABINE [Concomitant]
  4. VINCRISTINE [Concomitant]
  5. PREDNISONE [Concomitant]
  6. GEMZAR [Concomitant]

REACTIONS (6)
  - Bone marrow failure [Unknown]
  - Disease progression [Unknown]
  - Neuropathy peripheral [Unknown]
  - Dyspnoea [Unknown]
  - Pleural effusion [Unknown]
  - Death [Fatal]
